FAERS Safety Report 19002654 (Version 2)
Quarter: 2021Q1

REPORT INFORMATION
  Report Type: Spontaneous
  Country: BR (occurrence: BR)
  Receive Date: 20210312
  Receipt Date: 20210317
  Transmission Date: 20210420
  Serious: Yes (Hospitalization)
  Sender: FDA-Public Use
  Company Number: BR-PFIZER INC-2021262641

PATIENT
  Age: 44 Year
  Sex: Male

DRUGS (5)
  1. BROMAZEPAM [Suspect]
     Active Substance: BROMAZEPAM
     Indication: ANXIETY
     Dosage: 6 MG, DAILY
     Route: 048
  2. CLONAZEPAM. [Suspect]
     Active Substance: CLONAZEPAM
     Indication: GENERALISED ANXIETY DISORDER
     Dosage: 0.25 MG, SINGLE
     Route: 048
  3. CLONAZEPAM. [Suspect]
     Active Substance: CLONAZEPAM
     Indication: ANXIETY
  4. ZOLPIDEM [Concomitant]
     Active Substance: ZOLPIDEM TARTRATE
     Indication: GENERALISED ANXIETY DISORDER
     Dosage: UNK (OCCASIONAL USE)
  5. MIDAZOLAM. [Concomitant]
     Active Substance: MIDAZOLAM
     Indication: GENERALISED ANXIETY DISORDER
     Dosage: UNK (OCCASIONAL USE)

REACTIONS (1)
  - Angle closure glaucoma [Recovered/Resolved]
